FAERS Safety Report 16301479 (Version 1)
Quarter: 2019Q2

REPORT INFORMATION
  Report Type: Report from Study
  Country: KR (occurrence: KR)
  Receive Date: 20190511
  Receipt Date: 20190511
  Transmission Date: 20190711
  Serious: Yes (Other)
  Sender: FDA-Public Use
  Company Number: KR-ROCHE-2273167

PATIENT
  Age: 73 Year
  Sex: Female
  Weight: 70 kg

DRUGS (12)
  1. ACLOFEN [Concomitant]
     Route: 048
     Dates: start: 20180323
  2. ULTRACET [Concomitant]
     Active Substance: ACETAMINOPHEN\TRAMADOL HYDROCHLORIDE
     Route: 048
     Dates: start: 20180504
  3. TRASTUZUMAB. [Suspect]
     Active Substance: TRASTUZUMAB
     Indication: BREAST CANCER METASTATIC
     Route: 041
     Dates: start: 20180323
  4. DOCETAXEL. [Suspect]
     Active Substance: DOCETAXEL
     Indication: BREAST CANCER METASTATIC
     Dosage: SUBSEQUENT DOSE RECEIVED ON 13/APR/2018, 04/MAY/2018, 25/MAY/2018, 16/JUL/2018, 06/AUG/2018, 27/AUG/
     Route: 065
     Dates: start: 20180323
  5. LANSTON [Concomitant]
     Active Substance: LANSOPRAZOLE
     Route: 048
     Dates: start: 20180323
  6. TACENOL [Concomitant]
     Route: 048
     Dates: start: 20180323
  7. PERTUZUMAB. [Suspect]
     Active Substance: PERTUZUMAB
     Dosage: SUBSEQUENT DOSE RECEIVED ON 04/MAY/2018, 25/MAY/2018, 16/JUL/2018, 06/AUG/2018, 27/AUG/2018, 18/SEP/
     Route: 065
     Dates: start: 20180413
  8. DEXAMETHASONE. [Concomitant]
     Active Substance: DEXAMETHASONE
     Route: 048
     Dates: start: 20180323
  9. TIRAMIDE [Concomitant]
     Route: 048
     Dates: start: 20180323
  10. LOPMIN [Concomitant]
     Route: 048
     Dates: start: 20180323
  11. PERTUZUMAB. [Suspect]
     Active Substance: PERTUZUMAB
     Indication: BREAST CANCER METASTATIC
     Route: 065
     Dates: start: 20180323
  12. TRASTUZUMAB. [Suspect]
     Active Substance: TRASTUZUMAB
     Dosage: SUBSEQUENT DOSE RECEIVED ON 04/MAY/2018, 25/MAY/2018, 16/JUL/2018, 06/AUG/2018, 27/AUG/2018, 18/SEP/
     Route: 042
     Dates: start: 20180413

REACTIONS (6)
  - Myalgia [Recovering/Resolving]
  - Subcutaneous abscess [Recovering/Resolving]
  - Pyrexia [Recovered/Resolved]
  - Diarrhoea [Recovering/Resolving]
  - Dermatitis [Recovered/Resolved]
  - Pleuritic pain [Recovering/Resolving]

NARRATIVE: CASE EVENT DATE: 20180413
